FAERS Safety Report 6402892-3 (Version None)
Quarter: 2009Q4

REPORT INFORMATION
  Report Type: 
  Country: None (occurrence: None)
  Receive Date: 20091014
  Receipt Date: 20091014
  Transmission Date: 20100525
  Serious: Yes (Hospitalization)
  Sender: FDA-Public Use
  Company Number: None

PATIENT
  Age: 72 Year
  Sex: Male

DRUGS (1)
  1. VARDENAFIL [Suspect]
     Dosage: 20 MG HS PO
     Route: 048
     Dates: start: 20080501, end: 20090930

REACTIONS (1)
  - OPTIC ISCHAEMIC NEUROPATHY [None]
